FAERS Safety Report 22944351 (Version 3)
Quarter: 2024Q2

REPORT INFORMATION
  Report Type: Spontaneous
  Country: JP (occurrence: JP)
  Receive Date: 20230914
  Receipt Date: 20240408
  Transmission Date: 20240716
  Serious: Yes (Death, Life-Threatening, Hospitalization)
  Sender: FDA-Public Use
  Company Number: JP-CHUGAI-2023032752AA

PATIENT
  Age: 77 Year
  Sex: Female
  Weight: 58.4 kg

DRUGS (7)
  1. TECENTRIQ [Suspect]
     Active Substance: ATEZOLIZUMAB
     Indication: Non-small cell lung cancer
     Route: 041
     Dates: start: 20230810, end: 20230810
  2. CARBOPLATIN [Suspect]
     Active Substance: CARBOPLATIN
     Indication: Large cell lung cancer
     Route: 065
     Dates: start: 20230810, end: 20230810
  3. PACLITAXEL [Suspect]
     Active Substance: PACLITAXEL
     Indication: Large cell lung cancer
     Route: 065
     Dates: start: 20230810, end: 20230810
  4. DEXAMETHASONE SODIUM PHOSPHATE [Concomitant]
     Active Substance: DEXAMETHASONE PHOSPHATE\DEXAMETHASONE SODIUM PHOSPHATE
     Dosage: UNK
     Dates: start: 20230810, end: 20230810
  5. PALONOSETRON HYDROCHLORIDE [Concomitant]
     Active Substance: PALONOSETRON HYDROCHLORIDE
     Dosage: UNK
     Dates: start: 20230810, end: 20230810
  6. APREPITANT [Concomitant]
     Active Substance: APREPITANT
     Dosage: UNK
     Dates: start: 20230810, end: 20230812
  7. DECADRON [Concomitant]
     Active Substance: DEXAMETHASONE
     Dosage: UNK
     Dates: start: 20230811, end: 20230813

REACTIONS (6)
  - Bacteraemia [Recovering/Resolving]
  - Encephalitis autoimmune [Recovered/Resolved]
  - Decreased immune responsiveness [Unknown]
  - Cardiac arrest [Fatal]
  - Large cell lung cancer recurrent [Fatal]
  - COVID-19 [Unknown]

NARRATIVE: CASE EVENT DATE: 20230815
